FAERS Safety Report 23613342 (Version 1)
Quarter: 2024Q1

REPORT INFORMATION
  Report Type: Report from Study
  Country: US (occurrence: US)
  Receive Date: 20240308
  Receipt Date: 20240308
  Transmission Date: 20240410
  Serious: Yes (Other)
  Sender: FDA-Public Use
  Company Number: US-JAZZ PHARMACEUTICALS-2023-US-024301

PATIENT
  Sex: Male

DRUGS (7)
  1. XYREM [Suspect]
     Active Substance: SODIUM OXYBATE
     Indication: Narcolepsy
     Dosage: UNK
  2. XYREM [Suspect]
     Active Substance: SODIUM OXYBATE
     Indication: Cataplexy
  3. XYREM [Suspect]
     Active Substance: SODIUM OXYBATE
     Indication: Somnolence
  4. MODAFINIL [Concomitant]
     Active Substance: MODAFINIL
     Dosage: OTH
     Dates: start: 20140101
  5. TESTOSTERONE [Concomitant]
     Active Substance: TESTOSTERONE
     Dosage: 0000
     Dates: start: 20120101
  6. VITAMINS NOS [Concomitant]
     Active Substance: VITAMINS
     Dosage: OTH
     Dates: start: 20120101
  7. SERMORELIN ACETATE [Concomitant]
     Active Substance: SERMORELIN ACETATE
     Dosage: 0000
     Dates: start: 20201201

REACTIONS (2)
  - Hypothyroidism [Unknown]
  - Hypogonadism [Unknown]
